FAERS Safety Report 9995747 (Version 2)
Quarter: 2014Q1

REPORT INFORMATION
  Report Type: Report from Study
  Country: KR (occurrence: KR)
  Receive Date: 20140311
  Receipt Date: 20140311
  Transmission Date: 20141002
  Serious: Yes (Hospitalization)
  Sender: FDA-Public Use
  Company Number: KR-B.I. PHARMACEUTICALS,INC./RIDGEFIELD-2011-BP-27554BP

PATIENT
  Age: 54 Year
  Sex: Female
  Weight: 54 kg

DRUGS (3)
  1. BIBW 2992 [Suspect]
     Indication: BREAST CANCER METASTATIC
     Dosage: 40 MG
     Route: 048
     Dates: start: 20111024, end: 20111205
  2. VINORELBINE [Suspect]
     Indication: BREAST CANCER METASTATIC
     Dosage: 39 MG
     Route: 042
     Dates: start: 20111024, end: 20111128
  3. DICAMAX [Concomitant]
     Indication: OSTEOPENIA
     Dosage: MULTI, 1T
     Route: 048
     Dates: start: 20110328

REACTIONS (8)
  - Febrile neutropenia [Recovered/Resolved]
  - Shock [Recovered/Resolved]
  - Nausea [Recovered/Resolved]
  - Vomiting [Recovered/Resolved]
  - Epigastric discomfort [Recovered/Resolved]
  - Haemoglobin decreased [Recovered/Resolved]
  - Pruritus [Not Recovered/Not Resolved]
  - Dermatitis acneiform [Recovered/Resolved]
